FAERS Safety Report 5590570-2 (Version None)
Quarter: 2008Q1

REPORT INFORMATION
  Report Type: 
  Country: None (occurrence: None)
  Receive Date: 20080110
  Receipt Date: 20080104
  Transmission Date: 20080703
  Serious: Yes (Hospitalization)
  Sender: FDA-Public Use
  Company Number: CERZ-10292

PATIENT
  Age: 13 Year
  Sex: Female
  Weight: 83.9 kg

DRUGS (7)
  1. CEREZYME [Suspect]
     Indication: GAUCHER'S DISEASE
     Dosage: 3600 U, Q2W, INTRAVENOUS
     Route: 042
     Dates: start: 19970901
  2. METHADONE HCL [Concomitant]
  3. NAPROSYN [Concomitant]
  4. ACETAMINOPHEN [Concomitant]
  5. NEURONTIN [Concomitant]
  6. NEXIAM (ESOMEPRAZOLE) [Concomitant]
  7. ZOLOFT [Concomitant]

REACTIONS (3)
  - ARTHRALGIA [None]
  - BONE PAIN [None]
  - HIP ARTHROPLASTY [None]
